FAERS Safety Report 11740828 (Version 2)
Quarter: 2015Q4

REPORT INFORMATION
  Report Type: Report from Study
  Country: FR (occurrence: FR)
  Receive Date: 20151114
  Receipt Date: 20151206
  Transmission Date: 20160304
  Serious: Yes (Other)
  Sender: FDA-Public Use
  Company Number: FR-BRISTOL-MYERS SQUIBB COMPANY-BMS-2015-066324

PATIENT
  Age: 61 Year
  Sex: Male
  Weight: 85 kg

DRUGS (5)
  1. NIVOLUMAB [Suspect]
     Active Substance: NIVOLUMAB
     Indication: NON-SMALL CELL LUNG CANCER
     Dosage: 225 MG, UNK
     Route: 065
     Dates: start: 20150826
  2. NIVOLUMAB [Suspect]
     Active Substance: NIVOLUMAB
     Dosage: 255 MG, UNK
     Route: 065
     Dates: start: 20151007
  3. NIVOLUMAB [Suspect]
     Active Substance: NIVOLUMAB
     Dosage: 255 MG, UNK
     Route: 065
     Dates: start: 20150923
  4. NIVOLUMAB [Suspect]
     Active Substance: NIVOLUMAB
     Dosage: 255 MG, UNK
     Route: 065
     Dates: start: 20150909
  5. NIVOLUMAB [Suspect]
     Active Substance: NIVOLUMAB
     Dosage: 255 MG, UNK
     Route: 065
     Dates: start: 20151104

REACTIONS (4)
  - Haemoglobin decreased [Unknown]
  - Haemoglobin abnormal [Unknown]
  - Renal failure [Unknown]
  - Creatinine renal clearance decreased [Unknown]

NARRATIVE: CASE EVENT DATE: 20150907
